FAERS Safety Report 10052249 (Version 1)
Quarter: 2014Q2

REPORT INFORMATION
  Report Type: Spontaneous
  Country: US (occurrence: None)
  Receive Date: 20140401
  Receipt Date: 20140401
  Transmission Date: 20141212
  Serious: Yes (Other)
  Sender: FDA-Public Use
  Company Number: None

PATIENT
  Age: 77 Year
  Sex: Female

DRUGS (12)
  1. FORTEO [Suspect]
     Route: 058
     Dates: start: 20130406
  2. VITAMIN D3 [Concomitant]
  3. VITAMIN B6 [Concomitant]
  4. CALCIUM [Concomitant]
  5. ASPIRIN [Concomitant]
  6. CRESTOR [Concomitant]
  7. BYSTOLIC [Concomitant]
  8. TAMBACOR [Concomitant]
  9. SYNTHROID [Concomitant]
  10. OMEPRAZOLE [Concomitant]
  11. DICYCLOMINE [Concomitant]
  12. DIOVAN [Concomitant]

REACTIONS (2)
  - Meningitis viral [None]
  - Drug dose omission [None]
